FAERS Safety Report 18034511 (Version 5)
Quarter: 2021Q2

REPORT INFORMATION
  Report Type: Spontaneous
  Country: US (occurrence: US)
  Receive Date: 20200716
  Receipt Date: 20210513
  Transmission Date: 20210717
  Serious: Yes (Other)
  Sender: FDA-Public Use
  Company Number: US-GILEAD-2020-0482820

PATIENT
  Sex: Female
  Weight: 88.5 kg

DRUGS (26)
  1. TIVICAY [Concomitant]
     Active Substance: DOLUTEGRAVIR SODIUM
     Dosage: UNK
     Dates: start: 201610
  2. STRATTERA [Concomitant]
     Active Substance: ATOMOXETINE HYDROCHLORIDE
  3. NORVIR [Concomitant]
     Active Substance: RITONAVIR
  4. GABAPENTIN. [Concomitant]
     Active Substance: GABAPENTIN
  5. DESYREL [Concomitant]
     Active Substance: TRAZODONE HYDROCHLORIDE
  6. LITHIUM. [Concomitant]
     Active Substance: LITHIUM
  7. KEFLEX [Concomitant]
     Active Substance: CEPHALEXIN
  8. SEROQUEL [Concomitant]
     Active Substance: QUETIAPINE FUMARATE
  9. BIKTARVY [Suspect]
     Active Substance: BICTEGRAVIR SODIUM\EMTRICITABINE\TENOFOVIR ALAFENAMIDE FUMARATE
     Indication: HIV INFECTION
     Dosage: UNK
     Route: 065
     Dates: start: 20180329
  10. WELLBUTRIN [Concomitant]
     Active Substance: BUPROPION HYDROCHLORIDE
  11. MENINGOCOCCAL POLYSACCHARIDE VACCINE A NOS [Concomitant]
     Active Substance: MENINGOCOCCAL POLYSACCHARIDE VACCINE A\NEISSERIA MENINGITIDIS GROUP A CAPSULAR POLYSACCHARIDE ANTIGEN
  12. ABILIFY [Concomitant]
     Active Substance: ARIPIPRAZOLE
  13. ATAZANAVIR. [Concomitant]
     Active Substance: ATAZANAVIR
  14. DESCOVY [Concomitant]
     Active Substance: EMTRICITABINE\TENOFOVIR ALAFENAMIDE FUMARATE
     Dosage: UNK
     Dates: start: 201610
  15. NICOTINE. [Concomitant]
     Active Substance: NICOTINE
  16. IBUPROFEN. [Concomitant]
     Active Substance: IBUPROFEN
  17. NEURONTIN [Concomitant]
     Active Substance: GABAPENTIN
  18. BACTRIM DS [Concomitant]
     Active Substance: SULFAMETHOXAZOLE\TRIMETHOPRIM
  19. QUETIAPINE. [Concomitant]
     Active Substance: QUETIAPINE
  20. REYATAZ [Concomitant]
     Active Substance: ATAZANAVIR SULFATE
  21. METFORMIN [Concomitant]
     Active Substance: METFORMIN HYDROCHLORIDE
  22. TRUVADA [Suspect]
     Active Substance: EMTRICITABINE\TENOFOVIR DISOPROXIL FUMARATE
     Indication: HIV INFECTION
     Dosage: 1 DOSAGE FORM, QD
     Route: 048
     Dates: start: 20090212, end: 20110211
  23. ZOVIRAX [Concomitant]
     Active Substance: ACYCLOVIR
  24. TRAZODONE [Concomitant]
     Active Substance: TRAZODONE HYDROCHLORIDE
  25. RITONAVIR. [Concomitant]
     Active Substance: RITONAVIR
  26. GEODON [Concomitant]
     Active Substance: ZIPRASIDONE HYDROCHLORIDE\ZIPRASIDONE MESYLATE

REACTIONS (2)
  - Fracture [Unknown]
  - Weight increased [Recovered/Resolved]
